FAERS Safety Report 20821515 (Version 1)
Quarter: 2022Q2

REPORT INFORMATION
  Report Type: Spontaneous
  Country: US (occurrence: US)
  Receive Date: 20220512
  Receipt Date: 20220512
  Transmission Date: 20220721
  Serious: No
  Sender: FDA-Public Use
  Company Number: US-PFIZER INC-202200358756

PATIENT
  Age: 34 Year
  Sex: Female

DRUGS (2)
  1. XELJANZ XR [Suspect]
     Active Substance: TOFACITINIB CITRATE
     Dosage: 11 MG
     Dates: start: 20220128
  2. METHOTREXATE [Concomitant]
     Active Substance: METHOTREXATE
     Dosage: UNK

REACTIONS (5)
  - Product dose omission in error [Unknown]
  - Therapeutic response unexpected [Unknown]
  - Hypoaesthesia [Unknown]
  - Inflammatory marker increased [Unknown]
  - Disease progression [Unknown]

NARRATIVE: CASE EVENT DATE: 20220101
